FAERS Safety Report 10844844 (Version 1)
Quarter: 2015Q1

REPORT INFORMATION
  Report Type: Report from Study
  Country: DE (occurrence: DE)
  Receive Date: 20150220
  Receipt Date: 20150220
  Transmission Date: 20150721
  Serious: Yes (Other)
  Sender: FDA-Public Use
  Company Number: DE-TAKEDA-TPG2013A00776

PATIENT
  Age: 76 Year
  Sex: Male
  Weight: 78 kg

DRUGS (2)
  1. AZILSARTAN MEDOXOMIL [Suspect]
     Active Substance: AZILSARTAN KAMEDOXOMIL
     Indication: ESSENTIAL HYPERTENSION
     Route: 048
     Dates: start: 20120703
  2. PLATELET AGGREGATION INHIBITOR [Concomitant]
     Route: 065

REACTIONS (1)
  - No adverse event [Unknown]

NARRATIVE: CASE EVENT DATE: 20121017
